FAERS Safety Report 7035044-7 (Version None)
Quarter: 2010Q4

REPORT INFORMATION
  Report Type: 
  Country: None (occurrence: None)
  Receive Date: 20101008
  Receipt Date: 20100930
  Transmission Date: 20110411
  Serious: Yes (Hospitalization)
  Sender: FDA-Public Use
  Company Number: JP-ROCHE-731524

PATIENT
  Age: 63 Year
  Sex: Female

DRUGS (3)
  1. XELODA [Suspect]
     Indication: LARGE INTESTINE CARCINOMA
     Dosage: DISCONTINUED. DOSAGE IS UNCERTAIN.
     Route: 048
  2. AVASTIN [Suspect]
     Indication: LARGE INTESTINE CARCINOMA
     Dosage: DRUG DISCONTINUED.
     Route: 041
     Dates: start: 20100423
  3. ELPLAT [Concomitant]
     Dosage: DOSAGE IS UNCERTAIN.
     Route: 041

REACTIONS (2)
  - GASTROINTESTINAL PERFORATION [None]
  - PULMONARY EMBOLISM [None]
